FAERS Safety Report 8224132-5 (Version None)
Quarter: 2012Q1

REPORT INFORMATION
  Report Type: 
  Country: None (occurrence: None)
  Receive Date: 20120321
  Receipt Date: 20120315
  Transmission Date: 20120608
  Serious: No
  Sender: FDA-Public Use
  Company Number: US-PFIZER INC-2012070838

PATIENT

DRUGS (9)
  1. NORVASC [Suspect]
  2. NORCO [Suspect]
  3. ASPIRIN [Suspect]
  4. POTASSIUM PENCILLIN G [Suspect]
  5. SOMA [Suspect]
  6. AMOXICILLIN [Suspect]
  7. DARVOCET [Suspect]
  8. PERCOCET [Suspect]
  9. CODEINE SULFATE [Suspect]

REACTIONS (1)
  - DRUG HYPERSENSITIVITY [None]
